FAERS Safety Report 19183622 (Version 2)
Quarter: 2022Q1

REPORT INFORMATION
  Report Type: Spontaneous
  Country: None (occurrence: US)
  Receive Date: 20210427
  Receipt Date: 20220222
  Transmission Date: 20220423
  Serious: Yes (Hospitalization, Other)
  Sender: FDA-Public Use
  Company Number: US-LAVIPHARM SA-2109830

PATIENT
  Age: 66 Year
  Sex: Male

DRUGS (16)
  1. CLONIDINE [Suspect]
     Active Substance: CLONIDINE
     Indication: Drug withdrawal syndrome
     Route: 062
  2. METHADONE [Concomitant]
     Active Substance: METHADONE HYDROCHLORIDE
  3. PROPRANOLOL [Interacting]
     Active Substance: PROPRANOLOL HYDROCHLORIDE
  4. SERTRALINE [Concomitant]
     Active Substance: SERTRALINE HYDROCHLORIDE
  5. Divalproex sodium Extended Release (ER) [Concomitant]
  6. FERROUS GLUCONATE [Concomitant]
     Active Substance: FERROUS GLUCONATE
  7. SENNOSIDES [Concomitant]
     Active Substance: SENNOSIDES
  8. FINASTERIDE [Concomitant]
     Active Substance: FINASTERIDE
  9. ERGOCALCIFEROL [Concomitant]
     Active Substance: ERGOCALCIFEROL
  10. SODIUM BICARBONATE [Concomitant]
     Active Substance: SODIUM BICARBONATE
  11. LOSARTAN [Concomitant]
     Active Substance: LOSARTAN
  12. MORPHINE SULFATE [Concomitant]
     Active Substance: MORPHINE SULFATE
     Route: 042
  13. HYDROMORPHONE HCL [Concomitant]
     Active Substance: HYDROMORPHONE HYDROCHLORIDE
     Route: 042
  14. DEXAMETHASONE [Concomitant]
     Active Substance: DEXAMETHASONE
     Route: 042
  15. FLUOXETINE [Concomitant]
     Active Substance: FLUOXETINE HYDROCHLORIDE
  16. CLONIDINE [Interacting]
     Active Substance: CLONIDINE
     Route: 048

REACTIONS (10)
  - Hypotension [Unknown]
  - Fall [Unknown]
  - Drug withdrawal syndrome [Unknown]
  - Withdrawal hypertension [Unknown]
  - Drug interaction [Unknown]
  - Hypertension [Unknown]
  - Blood creatinine increased [Unknown]
  - Electrocardiogram QT prolonged [Unknown]
  - Drug abuse [Unknown]
  - Hypokalaemia [Unknown]
